FAERS Safety Report 16974295 (Version 2)
Quarter: 2019Q4

REPORT INFORMATION
  Report Type: Spontaneous
  Country: US (occurrence: US)
  Receive Date: 20190912
  Receipt Date: 20190912
  Transmission Date: 20200122
  Serious: No
  Sender: FDA-Public Use
  Company Number: None

PATIENT
  Age: 56 Year
  Sex: Female
  Weight: 73.48 kg

DRUGS (12)
  1. TRULANCE [Suspect]
     Active Substance: PLECANATIDE
     Indication: GASTROINTESTINAL HYPERMOTILITY
     Dosage: ?          QUANTITY:1 DF DOSAGE FORM;?
     Route: 048
     Dates: start: 20190729, end: 20190802
  2. SYNTHROID [Concomitant]
     Active Substance: LEVOTHYROXINE SODIUM
  3. HYDROCHLORATHIAZIDE [Concomitant]
     Active Substance: HYDROCHLOROTHIAZIDE
  4. LOSARTAN. [Concomitant]
     Active Substance: LOSARTAN
  5. VIT A, C, D [Concomitant]
  6. ACIDOPHYLIS [Concomitant]
  7. VENTOLIN [Concomitant]
     Active Substance: ALBUTEROL SULFATE
  8. VIT B-12 [Concomitant]
  9. ALERA [Concomitant]
  10. CLARITIN [Concomitant]
     Active Substance: LORATADINE
  11. PRENUPRO? [Concomitant]
  12. VITAMIN B6 [Concomitant]
     Active Substance: PYRIDOXINE HYDROCHLORIDE

REACTIONS (4)
  - Dysphagia [None]
  - Aphasia [None]
  - Pharyngeal disorder [None]
  - Paralysis [None]

NARRATIVE: CASE EVENT DATE: 20190801
